FAERS Safety Report 7858413-1 (Version None)
Quarter: 2011Q4

REPORT INFORMATION
  Report Type: 
  Country: None (occurrence: None)
  Receive Date: 20111027
  Receipt Date: 20111024
  Transmission Date: 20120403
  Serious: Yes (Death)
  Sender: FDA-Public Use
  Company Number: PHHY2011KR90736

PATIENT
  Sex: Female
  Weight: 59.4 kg

DRUGS (1)
  1. EXJADE [Suspect]
     Indication: IRON OVERLOAD
     Dosage: 750 MG, DAILY
     Route: 048
     Dates: start: 20100531, end: 20100823

REACTIONS (2)
  - T-CELL TYPE ACUTE LEUKAEMIA [None]
  - CONDITION AGGRAVATED [None]
